FAERS Safety Report 10573412 (Version 1)
Quarter: 2014Q4

REPORT INFORMATION
  Report Type: Spontaneous
  Country: US (occurrence: US)
  Receive Date: 20141110
  Receipt Date: 20141110
  Transmission Date: 20150529
  Serious: No
  Sender: FDA-Public Use
  Company Number: US-ASTRAZENECA-2014SE82301

PATIENT
  Age: 49 Year
  Sex: Male

DRUGS (7)
  1. GEODON [Suspect]
     Active Substance: ZIPRASIDONE HYDROCHLORIDE\ZIPRASIDONE MESYLATE
     Route: 065
     Dates: start: 2014
  2. QUETIAPINE [Suspect]
     Active Substance: QUETIAPINE
     Route: 048
     Dates: start: 2014
  3. ABILIFY [Suspect]
     Active Substance: ARIPIPRAZOLE
     Route: 065
     Dates: end: 2014
  4. CELEXA [Suspect]
     Active Substance: CITALOPRAM HYDROBROMIDE
     Route: 065
     Dates: end: 2014
  5. CYMBALTA [Suspect]
     Active Substance: DULOXETINE HYDROCHLORIDE
     Route: 065
     Dates: end: 2014
  6. CYMBALTA [Suspect]
     Active Substance: DULOXETINE HYDROCHLORIDE
     Route: 065
  7. KLONOPIN [Suspect]
     Active Substance: CLONAZEPAM
     Route: 065

REACTIONS (4)
  - Intentional product misuse [Unknown]
  - Drug effect incomplete [Unknown]
  - Persecutory delusion [Unknown]
  - Derealisation [Unknown]

NARRATIVE: CASE EVENT DATE: 2014
